FAERS Safety Report 10167429 (Version 1)
Quarter: 2014Q2

REPORT INFORMATION
  Report Type: Report from Study
  Country: US (occurrence: US)
  Receive Date: 20140512
  Receipt Date: 20140512
  Transmission Date: 20141212
  Serious: Yes (Other)
  Sender: FDA-Public Use
  Company Number: US-ABBVIE-14P-163-1236156-00

PATIENT
  Age: 49 Year
  Sex: Female

DRUGS (3)
  1. KALETRA [Suspect]
     Indication: ANTIRETROVIRAL THERAPY
     Dosage: TAKING AT CONCEPTION
     Route: 048
     Dates: start: 20100615
  2. TRUVADA [Suspect]
     Indication: ANTIRETROVIRAL THERAPY
     Dosage: TAKING AT CONCEPTION (TABLETS/CAPSULES)
     Route: 048
     Dates: start: 20100615, end: 20130822
  3. COMBIVIR [Suspect]
     Indication: ANTIRETROVIRAL THERAPY
     Dosage: NOT TAKING AT CONCEPTION (TABLETS/CAPSULES)
     Route: 048
     Dates: start: 20130823, end: 20131016

REACTIONS (1)
  - Abortion spontaneous [Unknown]
